FAERS Safety Report 21048001 (Version 1)
Quarter: 2022Q3

REPORT INFORMATION
  Report Type: Spontaneous
  Country: GB (occurrence: GB)
  Receive Date: 20220706
  Receipt Date: 20220706
  Transmission Date: 20221026
  Serious: Yes (Life-Threatening, Disabling, Other)
  Sender: FDA-Public Use
  Company Number: GB-MHRA-MED-202207032150324740-DVCJH

PATIENT
  Sex: Female
  Weight: 59 kg

DRUGS (2)
  1. CIPROFLOXACIN [Suspect]
     Active Substance: CIPROFLOXACIN
     Dosage: UNK
     Route: 042
  2. CIPROFLOXACIN HYDROCHLORIDE [Suspect]
     Active Substance: CIPROFLOXACIN HYDROCHLORIDE
     Indication: Adverse drug reaction
     Dosage: 500 MG, 2X/DAY

REACTIONS (6)
  - Pain [Not Recovered/Not Resolved]
  - Tendonitis [Not Recovered/Not Resolved]
  - Bone pain [Not Recovered/Not Resolved]
  - Impaired work ability [Not Recovered/Not Resolved]
  - Loss of personal independence in daily activities [Not Recovered/Not Resolved]
  - Medication error [Unknown]

NARRATIVE: CASE EVENT DATE: 20220614
